FAERS Safety Report 10356184 (Version 3)
Quarter: 2019Q4

REPORT INFORMATION
  Report Type: Report from Study
  Country: JP (occurrence: JP)
  Receive Date: 20140801
  Receipt Date: 20191030
  Transmission Date: 20200122
  Serious: Yes (Death, Life-Threatening)
  Sender: FDA-Public Use
  Company Number: JP-ALEXION PHARMACEUTICALS INC.-A201402925

PATIENT

DRUGS (4)
  1. SOLIRIS [Suspect]
     Active Substance: ECULIZUMAB
     Indication: ATYPICAL HAEMOLYTIC URAEMIC SYNDROME
     Dosage: 300 MG, QW
     Route: 042
     Dates: start: 20140212, end: 20140219
  2. TACROLIMUS. [Concomitant]
     Active Substance: TACROLIMUS
     Indication: PRODUCT USED FOR UNKNOWN INDICATION
     Dosage: UNK
     Route: 065
     Dates: start: 201401, end: 20140707
  3. CELLCEPT [Concomitant]
     Active Substance: MYCOPHENOLATE MOFETIL\MYCOPHENOLATE MOFETIL HYDROCHLORIDE
     Indication: PRODUCT USED FOR UNKNOWN INDICATION
     Dosage: UNK
     Route: 065
     Dates: end: 20140707
  4. SOLIRIS [Suspect]
     Active Substance: ECULIZUMAB
     Dosage: 300 MG, Q2W
     Route: 042
     Dates: start: 20140305, end: 20140430

REACTIONS (3)
  - Gastroenteritis adenovirus [Not Recovered/Not Resolved]
  - Renal impairment [Not Recovered/Not Resolved]
  - Pulmonary hypertension [Fatal]

NARRATIVE: CASE EVENT DATE: 20140619
